FAERS Safety Report 7410981-X (Version None)
Quarter: 2011Q2

REPORT INFORMATION
  Report Type: 
  Country: None (occurrence: None)
  Receive Date: 20110405
  Receipt Date: 20110328
  Transmission Date: 20111010
  Serious: Yes (Hospitalization)
  Sender: FDA-Public Use
  Company Number: DAV-AE-MTX-11-007

PATIENT
  Age: 36 Year
  Sex: Female

DRUGS (7)
  1. METHOTREXATE [Suspect]
  2. VINCRISTINE [Concomitant]
  3. BLEOMYCIN [Concomitant]
  4. CISPLATIN [Concomitant]
  5. DACTINOMYCIN [Concomitant]
  6. ETOPOSIDE [Concomitant]
  7. CYCLOPHOSPHAMIDE [Concomitant]

REACTIONS (3)
  - TUBERCULOSIS OF CENTRAL NERVOUS SYSTEM [None]
  - PRODUCT QUALITY ISSUE [None]
  - BLOOD HUMAN CHORIONIC GONADOTROPIN INCREASED [None]
